FAERS Safety Report 4603633-2 (Version None)
Quarter: 2005Q1

REPORT INFORMATION
  Report Type: 
  Country: None (occurrence: None)
  Receive Date: 20050308
  Receipt Date: 20050224
  Transmission Date: 20050727
  Serious: Yes (Other)
  Sender: FDA-Public Use
  Company Number: 212435

PATIENT
  Age: 73 Year
  Sex: Male
  Weight: 78 kg

DRUGS (11)
  1. MABTHERA          (RITUXIMAB) [Suspect]
     Indication: LYMPHOPLASMACYTOID LYMPHOMA/IMMUNOCYTOMA
     Dosage: INTRAVENOUS
     Route: 042
  2. ACETAMINOPHEN [Concomitant]
  3. ATARAX [Concomitant]
  4. HYDROCORTISONE [Concomitant]
  5. LANSOPRAZOLE [Concomitant]
  6. MOVICOL (POLYETHYLENE GLYCOL, ELECTROLYTES NOS) [Concomitant]
  7. RISPERDAL [Concomitant]
  8. FUROSEMIDE [Concomitant]
  9. ADALAT OROS (NIFEDIPINE) [Concomitant]
  10. CITALOPRAM [Concomitant]
  11. PROTAPHAN (NPH HUMAN INSULIN ISOPHANE SUSPENSION) [Concomitant]

REACTIONS (5)
  - BRONCHIAL OBSTRUCTION [None]
  - CONDITION AGGRAVATED [None]
  - CONFUSIONAL STATE [None]
  - GENERAL PHYSICAL HEALTH DETERIORATION [None]
  - TREMOR [None]
